FAERS Safety Report 26109464 (Version 2)
Quarter: 2025Q4

REPORT INFORMATION
  Report Type: Spontaneous
  Country: EU (occurrence: EU)
  Receive Date: 20251201
  Receipt Date: 20251210
  Transmission Date: 20260117
  Serious: Yes (Other)
  Sender: MYLAN
  Company Number: EU-ZENTIVA-2025-ZT-051264

PATIENT
  Age: 36 Year
  Sex: Female

DRUGS (64)
  1. LENALIDOMIDE [Suspect]
     Active Substance: LENALIDOMIDE
     Indication: Plasma cell myeloma refractory
     Dosage: 12.5 MILLIGRAM, QD (INCREASING DOSES OF LENALIDOMIDE MONOTHERAPY)
  2. LENALIDOMIDE [Suspect]
     Active Substance: LENALIDOMIDE
     Dosage: 12.5 MILLIGRAM, QD (INCREASING DOSES OF LENALIDOMIDE MONOTHERAPY)
  3. LENALIDOMIDE [Suspect]
     Active Substance: LENALIDOMIDE
     Dosage: 12.5 MILLIGRAM, QD (INCREASING DOSES OF LENALIDOMIDE MONOTHERAPY)
     Route: 065
  4. LENALIDOMIDE [Suspect]
     Active Substance: LENALIDOMIDE
     Dosage: 12.5 MILLIGRAM, QD (INCREASING DOSES OF LENALIDOMIDE MONOTHERAPY)
     Route: 065
  5. LENALIDOMIDE [Suspect]
     Active Substance: LENALIDOMIDE
     Dosage: INCREASING THE DOSE
  6. LENALIDOMIDE [Suspect]
     Active Substance: LENALIDOMIDE
     Dosage: INCREASING THE DOSE
  7. LENALIDOMIDE [Suspect]
     Active Substance: LENALIDOMIDE
     Dosage: INCREASING THE DOSE
     Route: 065
  8. LENALIDOMIDE [Suspect]
     Active Substance: LENALIDOMIDE
     Dosage: INCREASING THE DOSE
     Route: 065
  9. LENALIDOMIDE [Suspect]
     Active Substance: LENALIDOMIDE
     Dosage: UNK (MAINTENANCE)
  10. LENALIDOMIDE [Suspect]
     Active Substance: LENALIDOMIDE
     Dosage: UNK (MAINTENANCE)
  11. LENALIDOMIDE [Suspect]
     Active Substance: LENALIDOMIDE
     Dosage: UNK (MAINTENANCE)
     Route: 065
  12. LENALIDOMIDE [Suspect]
     Active Substance: LENALIDOMIDE
     Dosage: UNK (MAINTENANCE)
     Route: 065
  13. LENALIDOMIDE [Suspect]
     Active Substance: LENALIDOMIDE
     Dosage: UNK (ADDITION OF LENALIDOMIDE)
  14. LENALIDOMIDE [Suspect]
     Active Substance: LENALIDOMIDE
     Dosage: UNK (ADDITION OF LENALIDOMIDE)
  15. LENALIDOMIDE [Suspect]
     Active Substance: LENALIDOMIDE
     Dosage: UNK (ADDITION OF LENALIDOMIDE)
     Route: 065
  16. LENALIDOMIDE [Suspect]
     Active Substance: LENALIDOMIDE
     Dosage: UNK (ADDITION OF LENALIDOMIDE)
     Route: 065
  17. LENALIDOMIDE [Suspect]
     Active Substance: LENALIDOMIDE
     Dosage: UNK (DOSE-REDUCTION)
  18. LENALIDOMIDE [Suspect]
     Active Substance: LENALIDOMIDE
     Dosage: UNK (DOSE-REDUCTION)
     Route: 065
  19. LENALIDOMIDE [Suspect]
     Active Substance: LENALIDOMIDE
     Dosage: UNK (DOSE-REDUCTION)
  20. LENALIDOMIDE [Suspect]
     Active Substance: LENALIDOMIDE
     Dosage: UNK (DOSE-REDUCTION)
     Route: 065
  21. DEXAMETHASONE [Suspect]
     Active Substance: DEXAMETHASONE
     Indication: Plasma cell myeloma refractory
     Dosage: IN THE THIRD CYCLE, DEXAMETHASONE WAS ADDED
     Route: 065
  22. DEXAMETHASONE [Suspect]
     Active Substance: DEXAMETHASONE
     Indication: Plasma cell myeloma
     Dosage: IN THE THIRD CYCLE, DEXAMETHASONE WAS ADDED
  23. DEXAMETHASONE [Suspect]
     Active Substance: DEXAMETHASONE
     Dosage: IN THE THIRD CYCLE, DEXAMETHASONE WAS ADDED
  24. DEXAMETHASONE [Suspect]
     Active Substance: DEXAMETHASONE
     Dosage: IN THE THIRD CYCLE, DEXAMETHASONE WAS ADDED
     Route: 065
  25. DEXAMETHASONE [Suspect]
     Active Substance: DEXAMETHASONE
     Dosage: FOUR SERIES OF CYCLOPHOSPHAMIDE, BORTEZOMIB, AND DEXAMETHASONE
     Route: 065
  26. DEXAMETHASONE [Suspect]
     Active Substance: DEXAMETHASONE
     Dosage: FOUR SERIES OF CYCLOPHOSPHAMIDE, BORTEZOMIB, AND DEXAMETHASONE
  27. DEXAMETHASONE [Suspect]
     Active Substance: DEXAMETHASONE
     Dosage: FOUR SERIES OF CYCLOPHOSPHAMIDE, BORTEZOMIB, AND DEXAMETHASONE
  28. DEXAMETHASONE [Suspect]
     Active Substance: DEXAMETHASONE
     Dosage: FOUR SERIES OF CYCLOPHOSPHAMIDE, BORTEZOMIB, AND DEXAMETHASONE
     Route: 065
  29. DEXAMETHASONE [Suspect]
     Active Substance: DEXAMETHASONE
     Dosage: UNK (ADDITION OF DEXAMETHASONE)
  30. DEXAMETHASONE [Suspect]
     Active Substance: DEXAMETHASONE
     Dosage: UNK (ADDITION OF DEXAMETHASONE)
  31. DEXAMETHASONE [Suspect]
     Active Substance: DEXAMETHASONE
     Dosage: UNK (ADDITION OF DEXAMETHASONE)
     Route: 065
  32. DEXAMETHASONE [Suspect]
     Active Substance: DEXAMETHASONE
     Dosage: UNK (ADDITION OF DEXAMETHASONE)
     Route: 065
  33. DEXAMETHASONE [Suspect]
     Active Substance: DEXAMETHASONE
     Dosage: UNK (DOSE-REDUCTION)
  34. DEXAMETHASONE [Suspect]
     Active Substance: DEXAMETHASONE
     Dosage: UNK (DOSE-REDUCTION)
  35. DEXAMETHASONE [Suspect]
     Active Substance: DEXAMETHASONE
     Dosage: UNK (DOSE-REDUCTION)
     Route: 065
  36. DEXAMETHASONE [Suspect]
     Active Substance: DEXAMETHASONE
     Dosage: UNK (DOSE-REDUCTION)
     Route: 065
  37. DARATUMUMAB [Concomitant]
     Active Substance: DARATUMUMAB
     Indication: Plasma cell myeloma refractory
     Dosage: FROM THE FOURTH TO SIXTH CYCLES
  38. DARATUMUMAB [Concomitant]
     Active Substance: DARATUMUMAB
     Dosage: FROM THE FOURTH TO SIXTH CYCLES
  39. DARATUMUMAB [Concomitant]
     Active Substance: DARATUMUMAB
     Dosage: FROM THE FOURTH TO SIXTH CYCLES
     Route: 065
  40. DARATUMUMAB [Concomitant]
     Active Substance: DARATUMUMAB
     Dosage: FROM THE FOURTH TO SIXTH CYCLES
     Route: 065
  41. DARATUMUMAB [Concomitant]
     Active Substance: DARATUMUMAB
     Dosage: TWO SERIES OF DARATUMUMAB MONOTHERAPY WERE FOLLOWED BY ADDITION OF LENALIDOMIDE AND DEXAMETHASONE
  42. DARATUMUMAB [Concomitant]
     Active Substance: DARATUMUMAB
     Dosage: TWO SERIES OF DARATUMUMAB MONOTHERAPY WERE FOLLOWED BY ADDITION OF LENALIDOMIDE AND DEXAMETHASONE
  43. DARATUMUMAB [Concomitant]
     Active Substance: DARATUMUMAB
     Dosage: TWO SERIES OF DARATUMUMAB MONOTHERAPY WERE FOLLOWED BY ADDITION OF LENALIDOMIDE AND DEXAMETHASONE
     Route: 065
  44. DARATUMUMAB [Concomitant]
     Active Substance: DARATUMUMAB
     Dosage: TWO SERIES OF DARATUMUMAB MONOTHERAPY WERE FOLLOWED BY ADDITION OF LENALIDOMIDE AND DEXAMETHASONE
     Route: 065
  45. CYCLOPHOSPHAMIDE [Concomitant]
     Active Substance: CYCLOPHOSPHAMIDE
     Indication: Haematopoietic stem cell mobilisation
     Dosage: UNK (HIGH-DOSE)
  46. CYCLOPHOSPHAMIDE [Concomitant]
     Active Substance: CYCLOPHOSPHAMIDE
     Dosage: UNK (HIGH-DOSE)
     Route: 065
  47. CYCLOPHOSPHAMIDE [Concomitant]
     Active Substance: CYCLOPHOSPHAMIDE
     Dosage: UNK (HIGH-DOSE)
     Route: 065
  48. CYCLOPHOSPHAMIDE [Concomitant]
     Active Substance: CYCLOPHOSPHAMIDE
     Dosage: UNK (HIGH-DOSE)
  49. PLERIXAFOR [Concomitant]
     Active Substance: PLERIXAFOR
     Indication: Haematopoietic stem cell mobilisation
     Dosage: UNK (HIGH DOSE)
  50. PLERIXAFOR [Concomitant]
     Active Substance: PLERIXAFOR
     Dosage: UNK (HIGH DOSE)
  51. PLERIXAFOR [Concomitant]
     Active Substance: PLERIXAFOR
     Dosage: UNK (HIGH DOSE)
     Route: 065
  52. PLERIXAFOR [Concomitant]
     Active Substance: PLERIXAFOR
     Dosage: UNK (HIGH DOSE)
     Route: 065
  53. PLERIXAFOR [Concomitant]
     Active Substance: PLERIXAFOR
     Dosage: UNK (NEW ATTEMPT AT PLERIXAFOR STIMULATION YIELDED ENOUGH STEM CELLS TO CON DUCT A SECOND HDM-ASCT)
  54. PLERIXAFOR [Concomitant]
     Active Substance: PLERIXAFOR
     Dosage: UNK (NEW ATTEMPT AT PLERIXAFOR STIMULATION YIELDED ENOUGH STEM CELLS TO CON DUCT A SECOND HDM-ASCT)
  55. PLERIXAFOR [Concomitant]
     Active Substance: PLERIXAFOR
     Dosage: UNK (NEW ATTEMPT AT PLERIXAFOR STIMULATION YIELDED ENOUGH STEM CELLS TO CON DUCT A SECOND HDM-ASCT)
     Route: 065
  56. PLERIXAFOR [Concomitant]
     Active Substance: PLERIXAFOR
     Dosage: UNK (NEW ATTEMPT AT PLERIXAFOR STIMULATION YIELDED ENOUGH STEM CELLS TO CON DUCT A SECOND HDM-ASCT)
     Route: 065
  57. HYDROXYUREA [Concomitant]
     Active Substance: HYDROXYUREA
     Indication: Product used for unknown indication
     Dosage: UNK (DISCONTINUED FOR TWO WEEKS)
  58. HYDROXYUREA [Concomitant]
     Active Substance: HYDROXYUREA
     Dosage: UNK (DISCONTINUED FOR TWO WEEKS)
     Route: 065
  59. HYDROXYUREA [Concomitant]
     Active Substance: HYDROXYUREA
     Dosage: UNK (DISCONTINUED FOR TWO WEEKS)
     Route: 065
  60. HYDROXYUREA [Concomitant]
     Active Substance: HYDROXYUREA
     Dosage: UNK (DISCONTINUED FOR TWO WEEKS)
  61. BORTEZOMIB [Concomitant]
     Active Substance: BORTEZOMIB
     Indication: Plasma cell myeloma recurrent
     Dosage: UNK
  62. BORTEZOMIB [Concomitant]
     Active Substance: BORTEZOMIB
     Dosage: UNK
     Route: 065
  63. BORTEZOMIB [Concomitant]
     Active Substance: BORTEZOMIB
     Dosage: UNK
     Route: 065
  64. BORTEZOMIB [Concomitant]
     Active Substance: BORTEZOMIB
     Dosage: UNK

REACTIONS (3)
  - Cytopenia [Unknown]
  - Drug ineffective for unapproved indication [Unknown]
  - Therapy partial responder [Unknown]

NARRATIVE: CASE EVENT DATE: 20251029
